FAERS Safety Report 4829084-3 (Version None)
Quarter: 2005Q4

REPORT INFORMATION
  Report Type: 
  Country: None (occurrence: None)
  Receive Date: 20051014
  Receipt Date: 20050629
  Transmission Date: 20060501
  Serious: No
  Sender: FDA-Public Use
  Company Number: 2005SP000839

PATIENT
  Age: 59 Year
  Sex: Female
  Weight: 53.5244 kg

DRUGS (8)
  1. LUNESTA [Suspect]
     Dosage: 2 MG;HS;ORAL
     Route: 048
     Dates: start: 20050516, end: 20050516
  2. LEXAPRO [Concomitant]
  3. FUROSEMIDE [Concomitant]
  4. LEVOXYL [Concomitant]
  5. FOSAMAX [Concomitant]
  6. GLUCOSAMINE [Concomitant]
  7. CALCIUM GLUCONATE [Concomitant]
  8. NASACORT [Concomitant]

REACTIONS (3)
  - DIZZINESS [None]
  - INSOMNIA [None]
  - NAUSEA [None]
